FAERS Safety Report 10170006 (Version 2)
Quarter: 2014Q2

REPORT INFORMATION
  Report Type: Spontaneous
  Country: IT (occurrence: IT)
  Receive Date: 20140513
  Receipt Date: 20140521
  Transmission Date: 20141212
  Serious: Yes (Other)
  Sender: FDA-Public Use
  Company Number: IT-ACTAVIS-2014-09519

PATIENT
  Age: 74 Year
  Sex: Male
  Weight: 83 kg

DRUGS (5)
  1. IRINOTECAN (UNKNOWN) [Suspect]
     Indication: COLON CANCER
     Dosage: 330 MG, CYCLICAL
     Route: 042
     Dates: start: 20130820, end: 20140220
  2. ERBITUX [Suspect]
     Indication: COLON CANCER
     Dosage: 925 MG, CYCLICAL
     Route: 017
     Dates: start: 20130820, end: 20140315
  3. 5-FLUOROURACIL                     /00098801/ [Suspect]
     Indication: COLON CANCER
     Dosage: 740 MG, CYCLICAL
     Route: 040
     Dates: start: 20130820, end: 20140220
  4. 5-FLUOROURACIL                     /00098801/ [Suspect]
     Dosage: 4400 MG, CYCLICAL
     Route: 041
     Dates: start: 20130820, end: 20140220
  5. LEVOFOLINIC ACID [Concomitant]
     Indication: PRODUCT USED FOR UNKNOWN INDICATION
     Dosage: 370 MG, UNK
     Route: 065
     Dates: start: 20130820, end: 20140222

REACTIONS (5)
  - Neutropenia [Recovered/Resolved]
  - Groin pain [Recovering/Resolving]
  - Rash [Recovering/Resolving]
  - Skin fissures [Not Recovered/Not Resolved]
  - Haemorrhage [Not Recovered/Not Resolved]
